FAERS Safety Report 5421716-4 (Version None)
Quarter: 2007Q3

REPORT INFORMATION
  Report Type: 
  Country: None (occurrence: None)
  Receive Date: 20070725
  Receipt Date: 20070419
  Transmission Date: 20080115
  Serious: Yes (Hospitalization)
  Sender: FDA-Public Use
  Company Number: 2007EN000115

PATIENT
  Age: 42 Year
  Sex: Female
  Weight: 81.6475 kg

DRUGS (19)
  1. OPANA ER [Suspect]
     Indication: BACK PAIN
     Dosage: 40 MG;BID;40 MG;Q8H; 80 MG;BID
     Dates: start: 20070101, end: 20070101
  2. OPANA ER [Suspect]
     Indication: BACK PAIN
     Dosage: 40 MG;BID;40 MG;Q8H; 80 MG;BID
     Dates: start: 20070201, end: 20070101
  3. OPANA ER [Suspect]
     Indication: BACK PAIN
     Dosage: 40 MG;BID;40 MG;Q8H; 80 MG;BID
     Dates: start: 20070101, end: 20070601
  4. OPANA [Suspect]
     Indication: BREAKTHROUGH PAIN
     Dosage: 10 MG;PRN
     Dates: start: 20070301, end: 20070601
  5. FORTEO [Concomitant]
  6. VITAMIN D [Concomitant]
  7. CELEXA [Concomitant]
  8. XANAX [Concomitant]
  9. RESTORIL [Concomitant]
  10. METFORMIN HCL [Concomitant]
  11. ESTRADIOL [Concomitant]
  12. SINGULAIR [Concomitant]
  13. COMBIVENT [Concomitant]
  14. XOPENEX [Concomitant]
  15. BACLOFEN [Concomitant]
  16. POTASSIUM CHLORIDE [Concomitant]
  17. PROTONIX [Concomitant]
  18. GLYCOLAX [Concomitant]
  19. DOCUSATE SODIUM [Concomitant]

REACTIONS (7)
  - ABDOMINAL PAIN [None]
  - CONSTIPATION [None]
  - DISORIENTATION [None]
  - FEELING ABNORMAL [None]
  - HYPERSOMNIA [None]
  - THERAPEUTIC RESPONSE DECREASED [None]
  - VOMITING [None]
